FAERS Safety Report 23671445 (Version 1)
Quarter: 2024Q1

REPORT INFORMATION
  Report Type: Spontaneous
  Country: FR (occurrence: FR)
  Receive Date: 20240326
  Receipt Date: 20240326
  Transmission Date: 20240410
  Serious: Yes (Hospitalization, Other)
  Sender: FDA-Public Use
  Company Number: FR-CELLTRION INC.-2024FR007132

PATIENT

DRUGS (12)
  1. RITUXIMAB [Suspect]
     Active Substance: RITUXIMAB
     Indication: B-cell lymphoma
     Dosage: 1400 MILLIGRAM, 1 CYCLE
     Route: 058
     Dates: start: 20200918, end: 20201106
  2. PAROXETINE [Suspect]
     Active Substance: PAROXETINE
     Indication: Product used for unknown indication
     Dosage: 2 MILLIGRAM, EVERY 1 DAY
     Route: 048
     Dates: start: 20200909, end: 20201203
  3. AMOXICILLIN [Suspect]
     Active Substance: AMOXICILLIN
     Indication: Product used for unknown indication
     Dosage: 2 DF, EVERY 1 DAY
     Route: 048
     Dates: start: 20200820, end: 20201203
  4. FILGRASTIM [Suspect]
     Active Substance: FILGRASTIM
     Indication: Product used for unknown indication
     Dosage: 1 DF
     Route: 058
     Dates: start: 20200820
  5. VALACYCLOVIR HYDROCHLORIDE [Suspect]
     Active Substance: VALACYCLOVIR HYDROCHLORIDE
     Indication: Product used for unknown indication
     Dosage: 2 DF, EVERY 1 DAY
     Route: 048
     Dates: start: 20200820
  6. ERYTHROPOIETIN [Suspect]
     Active Substance: ERYTHROPOIETIN
     Indication: Product used for unknown indication
     Dosage: 1 DF
     Route: 051
     Dates: start: 20200820
  7. ACETAMINOPHEN [Suspect]
     Active Substance: ACETAMINOPHEN
     Indication: Premedication
     Dosage: 3 G, EVERY 1 DAY
     Route: 048
  8. ETOPOSIDE [Concomitant]
     Active Substance: ETOPOSIDE
     Indication: B-cell lymphoma
     Dosage: 450 MILLIGRAM, 1 CYCLE
     Route: 042
     Dates: start: 20200918, end: 20201108
  9. LANSOPRAZOLE [Concomitant]
     Active Substance: LANSOPRAZOLE
     Indication: Premedication
     Dosage: 15 MILLIGRAM, EVERY 1 DAY
     Route: 048
     Dates: start: 20201109
  10. PREDNISONE [Concomitant]
     Active Substance: PREDNISONE
     Indication: Chemotherapy side effect prophylaxis
     Dosage: 360 MILLIGRAM, 1 CYCLE
     Route: 048
     Dates: start: 20201109
  11. CYCLOPHOSPHAMIDE [Concomitant]
     Active Substance: CYCLOPHOSPHAMIDE
     Indication: B-cell lymphoma
     Dosage: 750 MILLIGRAM, 1 CYCLE
     Route: 042
     Dates: start: 20200918, end: 20201108
  12. DEXCHLORPHENIRAMINE [Concomitant]
     Active Substance: DEXCHLORPHENIRAMINE
     Indication: Premedication
     Dosage: UNK
     Route: 051
     Dates: end: 20201106

REACTIONS (5)
  - Aphasia [Recovering/Resolving]
  - Electroencephalogram abnormal [Recovering/Resolving]
  - Facial paralysis [Recovering/Resolving]
  - Seizure [Recovering/Resolving]
  - Intentional product use issue [Unknown]

NARRATIVE: CASE EVENT DATE: 20200930
